FAERS Safety Report 24420276 (Version 2)
Quarter: 2024Q4

REPORT INFORMATION
  Report Type: Report from Study
  Country: US (occurrence: US)
  Receive Date: 20241010
  Receipt Date: 20241018
  Transmission Date: 20250115
  Serious: No
  Sender: ROCHE
  Company Number: US-ROCHE-3504775

PATIENT
  Age: 60 Year
  Sex: Male

DRUGS (3)
  1. CATHFLO ACTIVASE [Suspect]
     Active Substance: ALTEPLASE
     Indication: Embolism
     Route: 065
     Dates: start: 20240116
  2. CATHFLO ACTIVASE [Suspect]
     Active Substance: ALTEPLASE
     Route: 065
     Dates: start: 20240117
  3. CATHFLO ACTIVASE [Suspect]
     Active Substance: ALTEPLASE
     Route: 065
     Dates: start: 20240118

REACTIONS (3)
  - Off label use [Unknown]
  - No adverse event [Unknown]
  - Off label use [Unknown]
